FAERS Safety Report 5455865-1 (Version None)
Quarter: 2007Q3

REPORT INFORMATION
  Report Type: 
  Country: None (occurrence: None)
  Receive Date: 20070918
  Receipt Date: 20070228
  Transmission Date: 20080115
  Serious: Yes (Other)
  Sender: FDA-Public Use
  Company Number: US-ASTRAZENECA-2006UW23270

PATIENT
  Sex: Female
  Weight: 115.5 kg

DRUGS (3)
  1. SEROQUEL [Suspect]
     Indication: BIPOLAR DISORDER
     Route: 048
     Dates: start: 20010501, end: 20030101
  2. HALDOL [Concomitant]
     Dates: start: 20010501
  3. RISPERDAL [Concomitant]
     Dates: start: 20010501

REACTIONS (3)
  - DIABETES MELLITUS [None]
  - DIABETIC KETOACIDOSIS [None]
  - NEUROLEPTIC MALIGNANT SYNDROME [None]
